FAERS Safety Report 16398424 (Version 1)
Quarter: 2019Q3

REPORT INFORMATION
  Report Type: Spontaneous
  Country: US (occurrence: US)
  Receive Date: 20190605
  Receipt Date: 20190605
  Transmission Date: 20191004
  Serious: Yes (Other)
  Sender: FDA-Public Use
  Company Number: None

PATIENT
  Age: 4 Year
  Sex: Male
  Weight: 15 kg

DRUGS (6)
  1. ITRACONAZOLE. [Concomitant]
     Active Substance: ITRACONAZOLE
     Dates: start: 20190423
  2. PENTAMIDINE [Suspect]
     Active Substance: PENTAMIDINE
     Indication: ANTIFUNGAL PROPHYLAXIS
     Dosage: ?          OTHER FREQUENCY:ONCE FOR ONE DOSE;?
     Route: 042
     Dates: start: 20190509, end: 20190509
  3. METHOTREXATE. [Concomitant]
     Active Substance: METHOTREXATE
  4. PREDNISOLONE. [Concomitant]
     Active Substance: PREDNISOLONE
  5. MERCAPTOPURINE. [Concomitant]
     Active Substance: MERCAPTOPURINE
  6. VINCRISTINE [Concomitant]
     Active Substance: VINCRISTINE
     Dates: start: 20190509, end: 20190509

REACTIONS (5)
  - Heart rate increased [None]
  - Tidal volume increased [None]
  - Lethargy [None]
  - Body temperature increased [None]
  - Somnolence [None]

NARRATIVE: CASE EVENT DATE: 20190509
